FAERS Safety Report 24848133 (Version 1)
Quarter: 2025Q1

REPORT INFORMATION
  Report Type: Spontaneous
  Country: ES (occurrence: ES)
  Receive Date: 20250116
  Receipt Date: 20250116
  Transmission Date: 20250408
  Serious: Yes (Other)
  Sender: CHEPLAPHARM
  Company Number: None

PATIENT
  Age: 44 Year
  Sex: Female

DRUGS (11)
  1. QUETIAPINE [Suspect]
     Active Substance: QUETIAPINE
     Indication: Panic disorder
     Dosage: 1 TABLET?DAILY DOSE: 50 MILLIGRAM
     Route: 048
     Dates: start: 20240905, end: 20241208
  2. OLANZAPINE [Suspect]
     Active Substance: OLANZAPINE
     Indication: Anxiety
  3. OLANZAPINE [Suspect]
     Active Substance: OLANZAPINE
     Indication: Insomnia
  4. TOPIRAMATE [Suspect]
     Active Substance: TOPIRAMATE
     Indication: Panic disorder
     Dosage: 1 TABLET EVERY 8 HOURS
     Route: 048
     Dates: start: 20210407
  5. GABAPENTIN [Concomitant]
     Active Substance: GABAPENTIN
     Indication: Panic disorder
     Route: 048
     Dates: start: 20240905
  6. FLUOXETINE [Concomitant]
     Active Substance: FLUOXETINE HYDROCHLORIDE
     Indication: Panic disorder
     Dosage: DAILY DOSE: 50 MILLIGRAM
     Route: 048
     Dates: start: 20230124
  7. TRAZODONE [Concomitant]
     Active Substance: TRAZODONE HYDROCHLORIDE
     Indication: Insomnia
     Dosage: 0-0-0.5 FOR 3 ?DAILY DOSE: 100 MILLIGRAM
     Route: 048
     Dates: start: 20210407
  8. TRAZODONE [Concomitant]
     Active Substance: TRAZODONE HYDROCHLORIDE
     Indication: Panic disorder
     Dosage: 0-0-0.5 FOR 3 ?DAILY DOSE: 100 MILLIGRAM
     Route: 048
     Dates: start: 20210407
  9. TRAZODONE [Concomitant]
     Active Substance: TRAZODONE HYDROCHLORIDE
     Indication: Insomnia
     Dosage: INCREASE TO 0-0-1.?DAILY DOSE: 100 MILLIGRAM
     Route: 048
  10. TRAZODONE [Concomitant]
     Active Substance: TRAZODONE HYDROCHLORIDE
     Indication: Panic disorder
     Dosage: INCREASE TO 0-0-1.?DAILY DOSE: 100 MILLIGRAM
     Route: 048
  11. OMEPRAZOLE [Concomitant]
     Active Substance: OMEPRAZOLE
     Dosage: DAILY DOSE: 40 MILLIGRAM
     Route: 048
     Dates: start: 20160803

REACTIONS (4)
  - Hypokalaemia [Recovered/Resolved]
  - Muscular weakness [Recovered/Resolved]
  - Off label use [Unknown]
  - Hypokalaemia [Unknown]

NARRATIVE: CASE EVENT DATE: 20241208
